FAERS Safety Report 18936225 (Version 2)
Quarter: 2021Q2

REPORT INFORMATION
  Report Type: Other
  Country: US (occurrence: US)
  Receive Date: 20210225
  Receipt Date: 20210413
  Transmission Date: 20210717
  Serious: Yes (Other)
  Sender: FDA-Public Use
  Company Number: US-GLENMARK PHARMACEUTICALS-2021GMK052162

PATIENT

DRUGS (1)
  1. OMEPRAZOLE. [Suspect]
     Active Substance: OMEPRAZOLE
     Indication: GASTROINTESTINAL DISORDER
     Dosage: UNK
     Route: 048
     Dates: start: 20190202, end: 201904

REACTIONS (15)
  - Arthropathy [Not Recovered/Not Resolved]
  - Prostate cancer [Unknown]
  - Myalgia [Not Recovered/Not Resolved]
  - Lymphadenopathy [Unknown]
  - Deep vein thrombosis [Unknown]
  - Expired product administered [Unknown]
  - Prostatic specific antigen increased [Not Recovered/Not Resolved]
  - Prostatitis [Unknown]
  - Back disorder [Unknown]
  - Illness [Unknown]
  - Mineral deficiency [Unknown]
  - Suspected product contamination [Unknown]
  - Arthralgia [Not Recovered/Not Resolved]
  - Loss of personal independence in daily activities [Recovering/Resolving]
  - Muscle spasms [Unknown]

NARRATIVE: CASE EVENT DATE: 2019
